FAERS Safety Report 16782450 (Version 2)
Quarter: 2019Q3

REPORT INFORMATION
  Report Type: Spontaneous
  Country: US (occurrence: US)
  Receive Date: 20190906
  Receipt Date: 20190917
  Transmission Date: 20191005
  Serious: Yes (Hospitalization)
  Sender: FDA-Public Use
  Company Number: US-VERTEX PHARMACEUTICALS-2019-008360

PATIENT
  Age: 28 Year
  Sex: Female

DRUGS (27)
  1. ALBUTEROL SULFATE. [Concomitant]
     Active Substance: ALBUTEROL SULFATE
  2. SODIUM CHLORIDE. [Concomitant]
     Active Substance: SODIUM CHLORIDE
  3. URSODIOL. [Concomitant]
     Active Substance: URSODIOL
  4. KITABIS PAK [Concomitant]
     Active Substance: TOBRAMYCIN
  5. CAYSTON [Concomitant]
     Active Substance: AZTREONAM
  6. BUDESONIDE. [Concomitant]
     Active Substance: BUDESONIDE
  7. CALCIUM CARBONATE. [Concomitant]
     Active Substance: CALCIUM CARBONATE
  8. SPIRIVA [Concomitant]
     Active Substance: TIOTROPIUM BROMIDE MONOHYDRATE
  9. VITAMIN C [Concomitant]
     Active Substance: ASCORBIC ACID
  10. DIPHENHYDRAMINE HCL [Concomitant]
     Active Substance: DIPHENHYDRAMINE HYDROCHLORIDE
  11. PULMOZYME [Concomitant]
     Active Substance: DORNASE ALFA
  12. ARTIFICIAL TEARS [HYPROMELLOSE] [Concomitant]
  13. BROVANA [Concomitant]
     Active Substance: ARFORMOTEROL TARTRATE
  14. PROAIR HFA [Concomitant]
     Active Substance: ALBUTEROL SULFATE
  15. FOLIC ACID. [Concomitant]
     Active Substance: FOLIC ACID
  16. POLYETHYLENE GLYCOL [Concomitant]
     Active Substance: POLYETHYLENE GLYCOLS
  17. VITAMIN D3 [Concomitant]
     Active Substance: CHOLECALCIFEROL
  18. ADVAIR HFA [Concomitant]
     Active Substance: FLUTICASONE PROPIONATE\SALMETEROL XINAFOATE
  19. FLUTICASONE. [Concomitant]
     Active Substance: FLUTICASONE
  20. LACTULOSE. [Concomitant]
     Active Substance: LACTULOSE
  21. OMEPRAZOLE. [Concomitant]
     Active Substance: OMEPRAZOLE
  22. SYMDEKO [Suspect]
     Active Substance: IVACAFTOR\TEZACAFTOR
     Indication: CYSTIC FIBROSIS
     Dosage: 100MG TEZACAFTOR/150MG IVACAFTOR AM;150MG IVACAFTOR PM
     Route: 048
     Dates: start: 201902
  23. AZITHROMYCIN ANHYDROUS. [Concomitant]
     Active Substance: AZITHROMYCIN ANHYDROUS
  24. FERROUS SULFATE. [Concomitant]
     Active Substance: FERROUS SULFATE
  25. ZENPEP [Concomitant]
     Active Substance: PANCRELIPASE AMYLASE\PANCRELIPASE LIPASE\PANCRELIPASE PROTEASE
  26. SUBOXONE [Concomitant]
     Active Substance: BUPRENORPHINE HYDROCHLORIDE\NALOXONE HYDROCHLORIDE
  27. LORATADINE. [Concomitant]
     Active Substance: LORATADINE

REACTIONS (1)
  - Infective pulmonary exacerbation of cystic fibrosis [Unknown]

NARRATIVE: CASE EVENT DATE: 20190816
